FAERS Safety Report 10517079 (Version 1)
Quarter: 2014Q4

REPORT INFORMATION
  Report Type: Spontaneous
  Country: US (occurrence: None)
  Receive Date: 20141003
  Receipt Date: 20141003
  Transmission Date: 20150528
  Serious: Yes (Other)
  Sender: FDA-Public Use
  Company Number: 1319110

PATIENT
  Age: 34 Year
  Sex: Male

DRUGS (3)
  1. PEG-INTERFERON ALFA 2A [Suspect]
     Active Substance: PEGINTERFERON ALFA-2A
     Indication: MANTLE CELL LYMPHOMA
     Route: 042
     Dates: start: 200602, end: 200608
  2. RITUXIMAB [Concomitant]
     Active Substance: RITUXIMAB
  3. BORTEZOMIB [Concomitant]
     Active Substance: BORTEZOMIB

REACTIONS (2)
  - Thrombocytopenia [None]
  - Fatigue [None]
